FAERS Safety Report 12097394 (Version 1)
Quarter: 2016Q1

REPORT INFORMATION
  Report Type: Other
  Country: US (occurrence: US)
  Receive Date: 20160221
  Receipt Date: 20160221
  Transmission Date: 20160526
  Serious: No
  Sender: FDA-Public Use
  Company Number: US-ACORDA-ACO_110255_2015

PATIENT
  Age: 54 Year
  Sex: Female
  Weight: 58.96 kg

DRUGS (2)
  1. AMPYRA [Suspect]
     Active Substance: DALFAMPRIDINE
     Indication: GAIT DISTURBANCE
     Dosage: 10 MG, Q 12 HRS
     Route: 048
  2. GILENYA [Suspect]
     Active Substance: FINGOLIMOD HYDROCHLORIDE
     Indication: PRODUCT USED FOR UNKNOWN INDICATION
     Dosage: UNK
     Route: 065

REACTIONS (10)
  - Dysphagia [Unknown]
  - Vitreous floaters [Unknown]
  - Back pain [Unknown]
  - Fall [Unknown]
  - Dizziness [Unknown]
  - Dyskinesia [Unknown]
  - Contusion [Unknown]
  - Cataract [Unknown]
  - Blood pressure fluctuation [Unknown]
  - Choking [Unknown]

NARRATIVE: CASE EVENT DATE: 20121012
